FAERS Safety Report 23173315 (Version 3)
Quarter: 2023Q4

REPORT INFORMATION
  Report Type: Report from Study
  Country: US (occurrence: US)
  Receive Date: 20231111
  Receipt Date: 20231123
  Transmission Date: 20240109
  Serious: Yes (Other)
  Sender: FDA-Public Use
  Company Number: US-002147023-NVSC2023US237282

PATIENT
  Sex: Female

DRUGS (3)
  1. KESIMPTA [Suspect]
     Active Substance: OFATUMUMAB
     Indication: Multiple sclerosis
     Dosage: UNK
     Route: 065
  2. TYLENOL EXTRA STRENGTH [Suspect]
     Active Substance: ACETAMINOPHEN
     Indication: Premedication
     Dosage: 1 DOSAGE FORM
     Route: 065
  3. BENADRYL [Suspect]
     Active Substance: DIPHENHYDRAMINE HYDROCHLORIDE
     Indication: Premedication
     Dosage: 2 DOSAGE FORM
     Route: 065

REACTIONS (14)
  - Multiple sclerosis [Unknown]
  - Condition aggravated [Unknown]
  - Insomnia [Unknown]
  - Concomitant disease aggravated [Unknown]
  - Dyspnoea exertional [Unknown]
  - Nervousness [Unknown]
  - Pyrexia [Unknown]
  - Chills [Unknown]
  - Headache [Unknown]
  - Injection site pain [Unknown]
  - Lung disorder [Unknown]
  - Paraesthesia [Unknown]
  - Abdominal pain [Unknown]
  - Abdominal distension [Unknown]
